FAERS Safety Report 10061618 (Version 1)
Quarter: 2014Q2

REPORT INFORMATION
  Report Type: Spontaneous
  Country: US (occurrence: None)
  Receive Date: 20140404
  Receipt Date: 20140404
  Transmission Date: 20141212
  Serious: Yes (Disabling)
  Sender: FDA-Public Use
  Company Number: None

PATIENT
  Age: 35 Year
  Sex: Female
  Weight: 58.97 kg

DRUGS (1)
  1. CIPRO [Suspect]
     Indication: URINARY TRACT INFECTION
     Route: 048

REACTIONS (9)
  - Pain [None]
  - Disorientation [None]
  - Vision blurred [None]
  - Neuropathy peripheral [None]
  - Tendon pain [None]
  - Depression [None]
  - Gastrointestinal disorder [None]
  - Loss of employment [None]
  - Gait disturbance [None]
